FAERS Safety Report 4586288-5 (Version None)
Quarter: 2005Q1

REPORT INFORMATION
  Report Type: 
  Country: None (occurrence: None)
  Receive Date: 20050125
  Receipt Date: 20041115
  Transmission Date: 20050727
  Serious: No
  Sender: FDA-Public Use
  Company Number: US_0411108212

PATIENT
  Age: 56 Year
  Sex: Female
  Weight: 50 kg

DRUGS (2)
  1. FORTEO [Suspect]
     Indication: OSTEOPOROSIS
     Dosage: 20 UG DAY
     Dates: start: 20041112, end: 20041114
  2. CALCIUM GLUCONATE [Concomitant]

REACTIONS (6)
  - CHILLS [None]
  - FEELING COLD [None]
  - INFLUENZA LIKE ILLNESS [None]
  - PAIN [None]
  - TREMOR [None]
  - VOMITING [None]
